FAERS Safety Report 19073748 (Version 1)
Quarter: 2021Q1

REPORT INFORMATION
  Report Type: Spontaneous
  Country: US (occurrence: US)
  Receive Date: 20210330
  Receipt Date: 20210330
  Transmission Date: 20210420
  Serious: Yes (Other)
  Sender: FDA-Public Use
  Company Number: US-BAYER-2021-112298

PATIENT

DRUGS (4)
  1. CLARITIN [Suspect]
     Active Substance: LORATADINE
     Indication: PRURITUS
     Dosage: 2 DF, QD
     Route: 065
  2. CLARITIN [Suspect]
     Active Substance: LORATADINE
     Indication: URTICARIA
  3. CLARITIN [Suspect]
     Active Substance: LORATADINE
     Indication: DYSPNOEA
  4. CLARITIN [Suspect]
     Active Substance: LORATADINE
     Indication: ERYTHEMA

REACTIONS (2)
  - Liver injury [Unknown]
  - Drug effective for unapproved indication [Unknown]
